FAERS Safety Report 10588736 (Version 3)
Quarter: 2014Q4

REPORT INFORMATION
  Report Type: Spontaneous
  Country: DE (occurrence: DE)
  Receive Date: 20141117
  Receipt Date: 20141208
  Transmission Date: 20150529
  Serious: Yes (Disabling)
  Sender: FDA-Public Use
  Company Number: DE-GLAXOSMITHKLINE-DE2014GSK019608

PATIENT
  Age: 1 Year
  Sex: Male
  Weight: 12.5 kg

DRUGS (5)
  1. SALBUTAMOL [Suspect]
     Active Substance: ALBUTEROL
     Dosage: 2 PUFF(S), QID
     Dates: start: 20141107
  2. SALBUTAMOL [Suspect]
     Active Substance: ALBUTEROL
     Indication: BRONCHIAL OBSTRUCTION
     Dosage: 2 PUFF(S), UNK
     Dates: start: 20141030
  3. CEFACLOR. [Suspect]
     Active Substance: CEFACLOR
     Indication: BRONCHIAL OBSTRUCTION
  4. FLUTIDE [Suspect]
     Active Substance: FLUTICASONE PROPIONATE
     Indication: INFANTILE ASTHMA
     Dosage: 125 UNK, BID
     Dates: start: 20141030, end: 20141110
  5. RECTODELT [Suspect]
     Active Substance: PREDNISONE
     Indication: BRONCHIAL OBSTRUCTION
     Dosage: UNK
     Dates: start: 20141030, end: 20141101

REACTIONS (11)
  - Dizziness [Recovered/Resolved]
  - Off label use [Unknown]
  - Daydreaming [Recovered/Resolved]
  - Pallor [Recovered/Resolved]
  - Dysstasia [Recovered/Resolved]
  - Personality change [Recovered/Resolved]
  - Dreamy state [Recovered/Resolved]
  - Fall [Recovered/Resolved]
  - Gait disturbance [Recovered/Resolved]
  - Hallucination [Recovered/Resolved]
  - Cardiovascular disorder [Recovered/Resolved]

NARRATIVE: CASE EVENT DATE: 20141030
